FAERS Safety Report 23634620 (Version 1)
Quarter: 2024Q1

REPORT INFORMATION
  Report Type: Report from Study
  Country: US (occurrence: US)
  Receive Date: 20240315
  Receipt Date: 20240315
  Transmission Date: 20240409
  Serious: No
  Sender: FDA-Public Use
  Company Number: US-ACADIA PHARMACEUTICALS INC.-ACA-2024-PIM-000857

PATIENT
  Sex: Female

DRUGS (12)
  1. NUPLAZID [Suspect]
     Active Substance: PIMAVANSERIN TARTRATE
     Indication: Parkinson^s disease
     Dosage: 44 MILLIGRAM, QD (NUPLAZID CAPSULE)
     Route: 048
     Dates: start: 20190808
  2. NUPLAZID [Suspect]
     Active Substance: PIMAVANSERIN TARTRATE
     Indication: Dyskinesia
  3. NUPLAZID [Suspect]
     Active Substance: PIMAVANSERIN TARTRATE
     Indication: Fluctuance
  4. NUPLAZID [Suspect]
     Active Substance: PIMAVANSERIN TARTRATE
     Indication: Parkinson^s disease
     Dosage: 44 MILLIGRAM, QD (NUPLAZID TABLET)
     Route: 048
     Dates: start: 20190808
  5. NUPLAZID [Suspect]
     Active Substance: PIMAVANSERIN TARTRATE
     Indication: Dyskinesia
  6. NUPLAZID [Suspect]
     Active Substance: PIMAVANSERIN TARTRATE
     Indication: Fluctuance
  7. ENBRACE HR [Concomitant]
     Active Substance: 1,2-DOCOSAHEXANOYL-SN-GLYCERO-3-PHOSPHOSERINE CALCIUM\1,2-ICOSAPENTOYL-SN-GLYCERO-3-PHOSPHOSERINE CA
     Dosage: UNK
     Dates: start: 20200506
  8. BELSOMRA [Concomitant]
     Active Substance: SUVOREXANT
     Dosage: UNK
     Dates: start: 20180202
  9. MIRTAZAPINE [Concomitant]
     Active Substance: MIRTAZAPINE
     Dosage: UNK
     Dates: start: 20180412
  10. KLONOPIN [Concomitant]
     Active Substance: CLONAZEPAM
     Dosage: UNK
     Dates: start: 20180412
  11. PRISTIQ EXTENDED-RELEASE [Concomitant]
     Active Substance: DESVENLAFAXINE SUCCINATE
     Dosage: UNK
     Dates: start: 20180327
  12. ENLYTE [Concomitant]
     Active Substance: CALCIUM ASCORBATE\CALCIUM THREONATE\COBALAMIN\COCARBOXYLASE\FERROUS GLUCONATE\FISH OIL\FLAVIN ADENIN
     Dosage: UNK
     Dates: start: 20180105

REACTIONS (2)
  - Drug ineffective [Not Recovered/Not Resolved]
  - Prescribed overdose [Not Recovered/Not Resolved]
